FAERS Safety Report 20002899 (Version 3)
Quarter: 2021Q4

REPORT INFORMATION
  Report Type: Other
  Country: CA (occurrence: CA)
  Receive Date: 20211027
  Receipt Date: 20211220
  Transmission Date: 20220303
  Serious: Yes (Hospitalization, Other)
  Sender: FDA-Public Use
  Company Number: CA-ROCHE-2944673

PATIENT
  Age: 75 Year
  Sex: Female
  Weight: 61 kg

DRUGS (18)
  1. XOLAIR [Suspect]
     Active Substance: OMALIZUMAB
     Indication: Asthma
     Route: 065
  2. XOLAIR [Suspect]
     Active Substance: OMALIZUMAB
     Route: 065
     Dates: start: 20150129
  3. XOLAIR [Suspect]
     Active Substance: OMALIZUMAB
     Route: 065
     Dates: start: 20160908
  4. XOLAIR [Suspect]
     Active Substance: OMALIZUMAB
     Route: 065
     Dates: start: 20161202
  5. XOLAIR [Suspect]
     Active Substance: OMALIZUMAB
     Route: 065
     Dates: start: 20161229
  6. XOLAIR [Suspect]
     Active Substance: OMALIZUMAB
     Route: 065
     Dates: start: 20170713
  7. XOLAIR [Suspect]
     Active Substance: OMALIZUMAB
     Route: 065
     Dates: start: 20170907
  8. XOLAIR [Suspect]
     Active Substance: OMALIZUMAB
     Route: 058
     Dates: start: 20080124
  9. CALCIUM CARBONATE [Concomitant]
     Active Substance: CALCIUM CARBONATE
     Indication: Product used for unknown indication
     Route: 065
  10. SYMBICORT [Concomitant]
     Active Substance: BUDESONIDE\FORMOTEROL FUMARATE DIHYDRATE
     Indication: Product used for unknown indication
     Route: 065
  11. VENTOLIN [Concomitant]
     Active Substance: ALBUTEROL SULFATE
     Indication: Product used for unknown indication
     Route: 065
  12. SINGULAIR [Concomitant]
     Active Substance: MONTELUKAST SODIUM
     Indication: Product used for unknown indication
     Route: 065
  13. SINGULAIR [Concomitant]
     Active Substance: MONTELUKAST SODIUM
     Route: 065
  14. INIBACE PLUS [Concomitant]
     Indication: Product used for unknown indication
     Route: 065
  15. CETIRIZINE HYDROCHLORIDE [Concomitant]
     Active Substance: CETIRIZINE HYDROCHLORIDE
     Indication: Product used for unknown indication
     Route: 065
  16. CILAZAPRIL ANHYDROUS\HYDROCHLOROTHIAZIDE [Concomitant]
     Active Substance: CILAZAPRIL ANHYDROUS\HYDROCHLOROTHIAZIDE
     Indication: Product used for unknown indication
     Route: 065
  17. PREMARIN [Concomitant]
     Active Substance: ESTROGENS, CONJUGATED
     Indication: Product used for unknown indication
     Route: 065
  18. INFLUENZA VIRUS VACCINE [Concomitant]
     Active Substance: INFLUENZA VIRUS VACCINE
     Indication: Product used for unknown indication
     Route: 065

REACTIONS (29)
  - Pneumonia [Unknown]
  - Blood cholesterol increased [Unknown]
  - Malaise [Unknown]
  - Nasal septum deviation [Unknown]
  - Osteoarthritis [Unknown]
  - Headache [Unknown]
  - Sinusitis [Recovered/Resolved]
  - Fatigue [Unknown]
  - Ischaemic cardiomyopathy [Not Recovered/Not Resolved]
  - Ankle fracture [Unknown]
  - Coronary artery thrombosis [Not Recovered/Not Resolved]
  - Blood pressure systolic increased [Recovered/Resolved]
  - Blood pressure abnormal [Not Recovered/Not Resolved]
  - Contusion [Unknown]
  - Drug interaction [Unknown]
  - Nasal discharge discolouration [Unknown]
  - Nasal congestion [Unknown]
  - Blood sodium decreased [Recovered/Resolved]
  - Ecchymosis [Unknown]
  - Fall [Unknown]
  - Hypertension [Unknown]
  - Back pain [Unknown]
  - Weight decreased [Unknown]
  - Glucose tolerance impaired [Unknown]
  - Upper-airway cough syndrome [Unknown]
  - Sinus congestion [Unknown]
  - Blood pressure diastolic decreased [Unknown]
  - Limb injury [Recovering/Resolving]
  - Herpes zoster [Recovered/Resolved]

NARRATIVE: CASE EVENT DATE: 20121011
